FAERS Safety Report 7066558-1 (Version None)
Quarter: 2010Q4

REPORT INFORMATION
  Report Type: 
  Country: None (occurrence: None)
  Receive Date: 20101027
  Receipt Date: 20100609
  Transmission Date: 20110411
  Serious: No
  Sender: FDA-Public Use
  Company Number: US-WYE-H15751210

PATIENT
  Sex: Female

DRUGS (1)
  1. PREMPRO [Suspect]
     Indication: MENOPAUSE
     Dosage: 0.625/2.5 MG 1 TABLET EVERY OTHER DAY
     Route: 048
     Dates: start: 19910101

REACTIONS (2)
  - DRUG INEFFECTIVE [None]
  - INSOMNIA [None]
